FAERS Safety Report 5936194-6 (Version None)
Quarter: 2008Q4

REPORT INFORMATION
  Report Type: 
  Country: None (occurrence: None)
  Receive Date: 20081030
  Receipt Date: 20081020
  Transmission Date: 20090506
  Serious: Yes (Other)
  Sender: FDA-Public Use
  Company Number: BR-PFIZER INC-2008089258

PATIENT
  Sex: Female

DRUGS (1)
  1. DEPO-PROVERA SUSPENSION/INJ [Suspect]

REACTIONS (1)
  - HAEMORRHAGE [None]
